FAERS Safety Report 19190502 (Version 2)
Quarter: 2021Q2

REPORT INFORMATION
  Report Type: Spontaneous
  Country: DE (occurrence: DE)
  Receive Date: 20210428
  Receipt Date: 20210430
  Transmission Date: 20210717
  Serious: Yes (Hospitalization, Other)
  Sender: FDA-Public Use
  Company Number: DE-B.I. PHARMACEUTICALS,INC./RIDGEFIELD-2021-BI-098703

PATIENT
  Age: 10 Month

DRUGS (3)
  1. SALBUTAMOL [Concomitant]
     Active Substance: ALBUTEROL
     Indication: BRONCHITIS
     Route: 055
  2. SUPRARENIN [EPINEPHRINE] [Concomitant]
     Indication: PRODUCT USED FOR UNKNOWN INDICATION
  3. ATROVENT [Suspect]
     Active Substance: IPRATROPIUM BROMIDE
     Indication: BRONCHITIS
     Route: 055

REACTIONS (12)
  - Dyspnoea [Unknown]
  - Stridor [Recovering/Resolving]
  - Non-Hodgkin^s lymphoma [Recovering/Resolving]
  - Respiratory disorder [Unknown]
  - Tachypnoea [Unknown]
  - Mediastinum neoplasm [Unknown]
  - Restlessness [Unknown]
  - Stridor [Unknown]
  - Rhonchi [Recovering/Resolving]
  - Obstructive airways disorder [Unknown]
  - Pericardial effusion [Unknown]
  - Obstructive airways disorder [Recovering/Resolving]
